FAERS Safety Report 4618291-0 (Version None)
Quarter: 2005Q1

REPORT INFORMATION
  Report Type: 
  Country: None (occurrence: None)
  Receive Date: 20050324
  Receipt Date: 20050309
  Transmission Date: 20050727
  Serious: Yes (Death)
  Sender: FDA-Public Use
  Company Number: CA_040907271

PATIENT
  Age: 57 Year
  Sex: Male

DRUGS (6)
  1. ZYPREXA [Suspect]
     Indication: BIPOLAR I DISORDER
     Dosage: 15 MG IN THE EVENING
     Dates: start: 20040422
  2. VALPROATE SODIUM [Suspect]
     Indication: BIPOLAR I DISORDER
     Dosage: 1500 MG IN THE EVENING
  3. CLONAZEPAM [Concomitant]
  4. ZOPICLONE [Concomitant]
  5. LOSEC (OMEPRAZOLE MAGNESIUM) [Concomitant]
  6. VIOXX [Concomitant]

REACTIONS (13)
  - ABDOMINAL DISCOMFORT [None]
  - BLOOD CHOLESTEROL INCREASED [None]
  - BLOOD SODIUM DECREASED [None]
  - CORONARY ARTERY ATHEROSCLEROSIS [None]
  - CORONARY ARTERY STENOSIS [None]
  - FUNGAL RASH [None]
  - INSOMNIA [None]
  - LOBAR PNEUMONIA [None]
  - LOW DENSITY LIPOPROTEIN INCREASED [None]
  - MOVEMENT DISORDER [None]
  - PULMONARY CONGESTION [None]
  - PULMONARY OEDEMA [None]
  - THYROID NEOPLASM [None]
